FAERS Safety Report 16062269 (Version 5)
Quarter: 2019Q2

REPORT INFORMATION
  Report Type: Spontaneous
  Country: JP (occurrence: JP)
  Receive Date: 20190312
  Receipt Date: 20190415
  Transmission Date: 20190711
  Serious: Yes (Other)
  Sender: FDA-Public Use
  Company Number: JP-009507513-1903JPN004713

PATIENT
  Age: 65 Year
  Sex: Male

DRUGS (10)
  1. PREDONINE [Concomitant]
     Active Substance: PREDNISOLONE
     Indication: PEMPHIGOID
     Dosage: 70 MILLIGRAM/ DAY
     Route: 048
     Dates: start: 20180114
  2. PLASTIBASE [Concomitant]
     Indication: PEMPHIGOID
     Dosage: ANTEBATE AND PLASTIBASE WERE MIXED IN A RATIO OF 1 :1
     Route: 061
     Dates: start: 20180131
  3. VALSARTAN. [Concomitant]
     Active Substance: VALSARTAN
     Indication: HYPERTENSION
     Dosage: 80 MILLIGRAM/ DAY
     Route: 048
     Dates: end: 2018
  4. TAKEPRON [Concomitant]
     Active Substance: LANSOPRAZOLE
     Indication: GASTROOESOPHAGEAL REFLUX DISEASE
     Dosage: 15 MILLIGRAM/ DAY
     Route: 048
     Dates: end: 20181211
  5. BONALON [Suspect]
     Active Substance: ALENDRONATE SODIUM
     Indication: OSTEOPOROSIS PROPHYLAXIS
     Dosage: 35 MILLIGRAM PER WEEK
     Route: 048
     Dates: start: 20180130, end: 20180410
  6. URSODEOXYCHOLIC ACID TOWA [Concomitant]
     Indication: HEPATIC FUNCTION ABNORMAL
     Dosage: 900 MILLIGRAM/ DAY
     Route: 048
     Dates: start: 20180122, end: 20180213
  7. PREDONINE [Concomitant]
     Active Substance: PREDNISOLONE
     Dosage: 10 MILLIGRAM/DAY
     Route: 048
     Dates: start: 20180114
  8. AMLODIPINE BESYLATE. [Concomitant]
     Active Substance: AMLODIPINE BESYLATE
     Indication: HYPERTENSION
     Dosage: 5 MILLIGRAM/ DAY
     Route: 048
  9. BISOPROLOL FUMARATE. [Concomitant]
     Active Substance: BISOPROLOL FUMARATE
     Indication: HYPERTENSION
     Dosage: 2.5 MILLIGRAM/ DAY
     Route: 048
     Dates: start: 2018
  10. ANTEBATE [Concomitant]
     Active Substance: BETAMETHASONE DIPROPIONATE
     Indication: PEMPHIGOID
     Dosage: ANTEBATE AND PLASTIBASE WERE MIXED IN A RATIO OF 1 :1
     Route: 061
     Dates: start: 20180131

REACTIONS (2)
  - Hypocalcaemia [Recovered/Resolved]
  - Hypoaesthesia [Recovered/Resolved]

NARRATIVE: CASE EVENT DATE: 201802
